FAERS Safety Report 13328477 (Version 1)
Quarter: 2017Q1

REPORT INFORMATION
  Report Type: Spontaneous
  Country: US (occurrence: US)
  Receive Date: 20170313
  Receipt Date: 20170313
  Transmission Date: 20170428
  Serious: No
  Sender: FDA-Public Use
  Company Number: US-JNJFOC-20170211296

PATIENT
  Age: 53 Year
  Sex: Male
  Weight: 79.38 kg

DRUGS (2)
  1. SUDAFED [Suspect]
     Active Substance: PSEUDOEPHEDRINE HYDROCHLORIDE
     Indication: PARANASAL SINUS DISCOMFORT
     Route: 048
     Dates: start: 20170210, end: 20170210
  2. SUDAFED [Suspect]
     Active Substance: PSEUDOEPHEDRINE HYDROCHLORIDE
     Indication: SINUS CONGESTION
     Route: 048
     Dates: start: 20170210, end: 20170210

REACTIONS (2)
  - Expired product administered [Unknown]
  - Incorrect dose administered [Unknown]

NARRATIVE: CASE EVENT DATE: 20170210
